FAERS Safety Report 15933699 (Version 1)
Quarter: 2019Q1

REPORT INFORMATION
  Report Type: Spontaneous
  Country: US (occurrence: US)
  Receive Date: 20190207
  Receipt Date: 20190207
  Transmission Date: 20190417
  Serious: No
  Sender: FDA-Public Use
  Company Number: US-009507513-1902USA000994

PATIENT
  Age: 1 Week
  Sex: Female

DRUGS (2)
  1. TRUSOPT [Suspect]
     Active Substance: DORZOLAMIDE HYDROCHLORIDE
     Indication: DEVELOPMENTAL GLAUCOMA
     Dosage: DROPS TWICE A DAY IN BOTH EYES
     Route: 047
  2. TIMOLOL. [Suspect]
     Active Substance: TIMOLOL
     Indication: DEVELOPMENTAL GLAUCOMA
     Route: 061

REACTIONS (1)
  - Product use in unapproved indication [Unknown]
